FAERS Safety Report 6710252-0 (Version None)
Quarter: 2010Q2

REPORT INFORMATION
  Report Type: 
  Country: None (occurrence: None)
  Receive Date: 20100430
  Receipt Date: 20100427
  Transmission Date: 20101027
  Serious: Yes (Hospitalization)
  Sender: FDA-Public Use
  Company Number: ALL1-2010-02430

PATIENT
  Age: 66 Year
  Sex: Female
  Weight: 47.6 kg

DRUGS (2)
  1. FOSRENOL [Suspect]
     Indication: HYPERPHOSPHATAEMIA
     Dosage: 500 MG WITH EACH MEAL, ORAL, 1000 MG WITH EACH MEAL, ORAL
     Route: 048
     Dates: start: 20091001, end: 20091101
  2. FOSRENOL [Suspect]
     Indication: HYPERPHOSPHATAEMIA
     Dosage: 500 MG WITH EACH MEAL, ORAL, 1000 MG WITH EACH MEAL, ORAL
     Route: 048
     Dates: start: 20091101

REACTIONS (4)
  - ANAEMIA [None]
  - ASTHENIA [None]
  - DIALYSIS [None]
  - LOSS OF CONSCIOUSNESS [None]
